FAERS Safety Report 9641758 (Version 1)
Quarter: 2013Q4

REPORT INFORMATION
  Report Type: Spontaneous
  Country: US (occurrence: US)
  Receive Date: 20131023
  Receipt Date: 20131023
  Transmission Date: 20140711
  Serious: Yes (Hospitalization)
  Sender: FDA-Public Use
  Company Number: US-BAYER-2013-127903

PATIENT
  Age: 24 Year
  Sex: Female

DRUGS (5)
  1. YAZ [Suspect]
  2. YASMIN [Suspect]
  3. ZYRTEC-D [Concomitant]
     Indication: MULTIPLE ALLERGIES
     Dosage: UNK
     Route: 048
     Dates: start: 20060928
  4. MOBIC [Concomitant]
     Indication: ARTHRALGIA
     Dosage: UNK
     Dates: start: 20060928
  5. IBUPROFEN [Concomitant]
     Dosage: UNK
     Route: 048
     Dates: start: 20060928

REACTIONS (1)
  - Pulmonary embolism [None]
